FAERS Safety Report 9618927 (Version 1)
Quarter: 2013Q4

REPORT INFORMATION
  Report Type: Spontaneous
  Country: DE (occurrence: DE)
  Receive Date: 20131014
  Receipt Date: 20131014
  Transmission Date: 20140711
  Serious: Yes (Other)
  Sender: FDA-Public Use
  Company Number: DE-ROCHE-1286134

PATIENT
  Age: 43 Year
  Sex: Male

DRUGS (2)
  1. DIAZEPAM [Suspect]
     Indication: INTENTIONAL OVERDOSE
     Route: 065
  2. DIAZEPAM [Suspect]
     Indication: SUICIDE ATTEMPT

REACTIONS (10)
  - Intentional overdose [Unknown]
  - Parkinson^s disease [Recovering/Resolving]
  - Respiratory depression [Unknown]
  - Cyanosis [Unknown]
  - Hypoxic-ischaemic encephalopathy [Recovering/Resolving]
  - Muscle spasticity [Unknown]
  - Central nervous system necrosis [Recovering/Resolving]
  - Pyramidal tract syndrome [Unknown]
  - Hypotension [Unknown]
  - Sopor [Unknown]
